FAERS Safety Report 17426889 (Version 1)
Quarter: 2020Q1

REPORT INFORMATION
  Report Type: Spontaneous
  Country: IN (occurrence: IN)
  Receive Date: 20200217
  Receipt Date: 20200217
  Transmission Date: 20200409
  Serious: Yes (Other)
  Sender: FDA-Public Use
  Company Number: IN-CMP PHARMA-2020CMP00005

PATIENT
  Age: 46 Year
  Sex: Female

DRUGS (8)
  1. METHOTREXATE. [Concomitant]
     Active Substance: METHOTREXATE
     Dosage: 10 MG, 1X/WEEK
     Route: 065
  2. UNSPECIFIED ANTIHYPERTENSIVE MEDICATIONS [Concomitant]
     Route: 065
  3. TRIAMCINOLONE [Suspect]
     Active Substance: TRIAMCINOLONE
     Indication: SCLERITIS
     Dosage: 40 MG/ML IN THE RIGHT EYE
     Route: 031
  4. UNSPECIFIED TOPICAL STEROIDS [Concomitant]
     Route: 065
  5. FOLIC ACID. [Concomitant]
     Active Substance: FOLIC ACID
     Dosage: 5 MG
     Route: 048
  6. TRIAMCINOLONE [Suspect]
     Active Substance: TRIAMCINOLONE
     Dosage: 40 MG/ML IN THE RIGHT EYE
     Route: 031
  7. TRIAMCINOLONE [Suspect]
     Active Substance: TRIAMCINOLONE
     Dosage: 40 MG/ML IN THE RIGHT EYE
     Route: 031
  8. UNSPECIFIED ORAL STEROIDS [Concomitant]
     Route: 065

REACTIONS (2)
  - Necrotising scleritis [Recovered/Resolved]
  - Cataract [Unknown]
